FAERS Safety Report 8343857-4 (Version None)
Quarter: 2012Q2

REPORT INFORMATION
  Report Type: 
  Country: None (occurrence: None)
  Receive Date: 20120508
  Receipt Date: 20120430
  Transmission Date: 20120825
  Serious: Yes (Other)
  Sender: FDA-Public Use
  Company Number: US-US-EMD SERONO, INC.-7099668

PATIENT
  Sex: Female
  Weight: 69 kg

DRUGS (1)
  1. EGRIFTA [Suspect]
     Indication: LIPODYSTROPHY ACQUIRED
     Route: 058
     Dates: start: 20110417, end: 20111101

REACTIONS (3)
  - INJECTION SITE SWELLING [None]
  - HYPERSENSITIVITY [None]
  - INJECTION SITE ERYTHEMA [None]
